FAERS Safety Report 8321469-6 (Version None)
Quarter: 2012Q2

REPORT INFORMATION
  Report Type: 
  Country: None (occurrence: None)
  Receive Date: 20120430
  Receipt Date: 20120430
  Transmission Date: 20120825
  Serious: Yes (Hospitalization)
  Sender: FDA-Public Use
  Company Number: None

PATIENT
  Sex: Female
  Weight: 53.523 kg

DRUGS (1)
  1. PLAVIX [Suspect]
     Indication: BRAIN STEM STROKE
     Dates: start: 20000501, end: 20120201

REACTIONS (7)
  - ABDOMINAL PAIN [None]
  - SINUS DISORDER [None]
  - EPISTAXIS [None]
  - HEADACHE [None]
  - PAIN IN EXTREMITY [None]
  - ARTERIAL RUPTURE [None]
  - VISUAL IMPAIRMENT [None]
